FAERS Safety Report 13277051 (Version 1)
Quarter: 2017Q1

REPORT INFORMATION
  Report Type: Report from Study
  Country: CA (occurrence: CA)
  Receive Date: 20170228
  Receipt Date: 20170228
  Transmission Date: 20170428
  Serious: Yes (Hospitalization)
  Sender: FDA-Public Use
  Company Number: CA-TAKEDA-2017TUS001773

PATIENT
  Age: 56 Year
  Sex: Male

DRUGS (15)
  1. VEDOLIZUMAB [Suspect]
     Active Substance: VEDOLIZUMAB
     Indication: COLITIS ULCERATIVE
     Dosage: 300 MG, UNK
     Route: 042
     Dates: start: 20170106
  2. FERAMAX [Concomitant]
     Active Substance: IRON\POLYSACCHARIDES
     Dosage: 300 MG, QD
     Route: 048
     Dates: start: 20161118
  3. VENOFER [Concomitant]
     Active Substance: IRON SUCROSE
     Dosage: UNK
     Dates: start: 20170104
  4. SALOFALK                           /00000301/ [Concomitant]
     Active Substance: MESALAMINE
     Dosage: 2 G, QD
     Route: 048
     Dates: start: 20161217
  5. PREDNISONE. [Concomitant]
     Active Substance: PREDNISONE
     Dosage: UNK
  6. NORVASC [Concomitant]
     Active Substance: AMLODIPINE BESYLATE
     Dosage: 10 MG, QD
     Route: 048
  7. ZOPICLONE [Concomitant]
     Active Substance: ZOPICLONE
     Dosage: UNK
  8. SALOFALK                           /00000301/ [Concomitant]
     Active Substance: MESALAMINE
     Dosage: 2 G, UNK
  9. CALCIUM [Concomitant]
     Active Substance: CALCIUM
     Dosage: 500 MG, QD
     Route: 048
  10. VITAMIN D [Concomitant]
     Active Substance: CHOLECALCIFEROL
     Dosage: 1000 MG, UNK
  11. TWINRIX [Concomitant]
     Active Substance: HEPATITIS A VIRUS STRAIN HM175 ANTIGEN (FORMALDEHYDE INACTIVATED)\HEPATITIS B VIRUS SUBTYPE ADW2 HBSAG SURFACE PROTEIN ANTIGEN
     Dosage: UNK
  12. DEXILANT [Suspect]
     Active Substance: DEXLANSOPRAZOLE
     Indication: PRODUCT USED FOR UNKNOWN INDICATION
     Dosage: 60 MG, QD
     Route: 048
     Dates: start: 20161217
  13. CORTICO [Concomitant]
     Dosage: UNK
  14. LUMIGAN [Concomitant]
     Active Substance: BIMATOPROST
     Dosage: 0.01 MG, UNK
  15. FERAMAX [Concomitant]
     Active Substance: IRON\POLYSACCHARIDES
     Dosage: 150 MG, QD
     Route: 048
     Dates: start: 201608

REACTIONS (3)
  - Fatigue [Not Recovered/Not Resolved]
  - Arthralgia [Not Recovered/Not Resolved]
  - Deep vein thrombosis [Unknown]

NARRATIVE: CASE EVENT DATE: 201701
